FAERS Safety Report 5384744-3 (Version None)
Quarter: 2007Q3

REPORT INFORMATION
  Report Type: 
  Country: None (occurrence: None)
  Receive Date: 20070711
  Receipt Date: 20070629
  Transmission Date: 20080115
  Serious: Yes (Hospitalization, Other)
  Sender: FDA-Public Use
  Company Number: US-PFIZER INC-2007054373

PATIENT
  Sex: Female

DRUGS (1)
  1. CHANTIX [Suspect]
     Dosage: TEXT:EVERY DAY

REACTIONS (8)
  - ACTIVITIES OF DAILY LIVING IMPAIRED [None]
  - BACK DISORDER [None]
  - CEREBROVASCULAR ACCIDENT [None]
  - HALLUCINATION [None]
  - MEMORY IMPAIRMENT [None]
  - MYDRIASIS [None]
  - NERVOUSNESS [None]
  - TREMOR [None]
